FAERS Safety Report 9417798 (Version 3)
Quarter: 2013Q4

REPORT INFORMATION
  Report Type: Spontaneous
  Country: JP (occurrence: JP)
  Receive Date: 20130724
  Receipt Date: 20131211
  Transmission Date: 20140711
  Serious: Yes (Hospitalization)
  Sender: FDA-Public Use
  Company Number: JP-GLAXOSMITHKLINE-B0909980A

PATIENT
  Age: 79 Year
  Sex: Female
  Weight: 49 kg

DRUGS (5)
  1. VALTREX [Suspect]
     Indication: HERPES ZOSTER
     Dosage: 1000MG THREE TIMES PER DAY
     Route: 048
     Dates: start: 20130713, end: 20130717
  2. ENALAPRIL [Suspect]
     Indication: HYPERTENSION
     Dosage: 5MG PER DAY
     Route: 048
     Dates: start: 20130108, end: 20130717
  3. MEMARY [Concomitant]
     Indication: DEMENTIA
     Dosage: 20MG PER DAY
     Route: 048
     Dates: start: 20130702
  4. ARICEPT D [Concomitant]
     Indication: DEMENTIA
     Dosage: 10MG PER DAY
     Route: 048
     Dates: start: 20120207
  5. BEZATOL SR [Concomitant]
     Indication: LIPID METABOLISM DISORDER
     Dosage: 200MG TWICE PER DAY
     Route: 048
     Dates: start: 20130430, end: 20130717

REACTIONS (5)
  - Renal impairment [Recovering/Resolving]
  - Dehydration [Unknown]
  - Hypophagia [Unknown]
  - Fluid intake reduced [Unknown]
  - Prerenal failure [Unknown]
